FAERS Safety Report 17220086 (Version 2)
Quarter: 2020Q1

REPORT INFORMATION
  Report Type: Spontaneous
  Country: US (occurrence: US)
  Receive Date: 20191231
  Receipt Date: 20200121
  Transmission Date: 20200409
  Serious: Yes (Hospitalization, Other)
  Sender: FDA-Public Use
  Company Number: US-SA-2019SA359910

PATIENT
  Age: 34 Year
  Sex: Male

DRUGS (7)
  1. DULOXETINE. [Concomitant]
     Active Substance: DULOXETINE
     Dosage: 60 MG, QD, AT BEDTIME
     Route: 065
  2. ZOLPIDEM TARTRATE. [Suspect]
     Active Substance: ZOLPIDEM TARTRATE
     Indication: INSOMNIA
     Dosage: 30-DAY REGIMEN OF 10 MG ZOLPIDEM AT BEDTIME
     Route: 065
  3. ZOLPIDEM TARTRATE. [Suspect]
     Active Substance: ZOLPIDEM TARTRATE
     Dosage: HE RECEIVED A 30-DAY REGIMEN OF 10 MG ZOLPIDEM AT BEDTIME. HOWEVER, HE IMMEDIATELY BEGAN TAKING 30 M
     Route: 065
  4. VERAPAMIL [Concomitant]
     Active Substance: VERAPAMIL HYDROCHLORIDE
     Indication: HYPERTENSION
     Dosage: 240 MG
     Route: 065
  5. ATOMOXETINE. [Concomitant]
     Active Substance: ATOMOXETINE HYDROCHLORIDE
     Indication: ATTENTION DEFICIT/HYPERACTIVITY DISORDER
     Dosage: 80 MG, QD
     Route: 065
  6. MIRTAZAPINE. [Concomitant]
     Active Substance: MIRTAZAPINE
     Dosage: 45 MG, QD, AT BEDTIME
     Route: 065
  7. METHAMPHETAMINE HCL [Concomitant]
     Active Substance: METHAMPHETAMINE HYDROCHLORIDE
     Route: 065

REACTIONS (9)
  - Aggression [Recovered/Resolved]
  - Drug withdrawal syndrome [Unknown]
  - Delirium [Recovered/Resolved]
  - Intentional product use issue [Unknown]
  - Disorientation [Recovered/Resolved]
  - Intentional self-injury [Recovered/Resolved]
  - Fear [Recovering/Resolving]
  - Anger [Recovered/Resolved]
  - Abnormal behaviour [Recovering/Resolving]
